FAERS Safety Report 6860080-0 (Version None)
Quarter: 2010Q3

REPORT INFORMATION
  Report Type: 
  Country: None (occurrence: None)
  Receive Date: 20100720
  Receipt Date: 20100608
  Transmission Date: 20110219
  Serious: Yes (Life-Threatening, Hospitalization)
  Sender: FDA-Public Use
  Company Number: CA-WYE-H16173010

PATIENT
  Age: 55 Year
  Sex: Female
  Weight: 61 kg

DRUGS (1)
  1. TECTA [Suspect]
     Dosage: 40 MG EVERY 1 TOT
     Route: 048

REACTIONS (4)
  - DYSPHONIA [None]
  - LIP SWELLING [None]
  - PRURITUS [None]
  - RASH GENERALISED [None]
